FAERS Safety Report 5491111-0 (Version None)
Quarter: 2007Q4

REPORT INFORMATION
  Report Type: 
  Country: None (occurrence: None)
  Receive Date: 20071019
  Receipt Date: 20071009
  Transmission Date: 20080405
  Serious: Yes (Life-Threatening, Hospitalization)
  Sender: FDA-Public Use
  Company Number: FR-PFIZER INC-2007071908

PATIENT
  Sex: Male
  Weight: 90 kg

DRUGS (11)
  1. LYRICA [Suspect]
     Indication: PAIN
     Route: 048
  2. ELISOR [Concomitant]
     Route: 048
  3. PERINDOPRIL ERBUMINE [Concomitant]
     Route: 048
  4. ACETAMINOPHEN AND CODEINE PHOSPHATE [Concomitant]
     Route: 048
  5. LASIX [Concomitant]
     Route: 048
  6. KEPPRA [Concomitant]
     Route: 048
  7. XATRAL [Concomitant]
     Route: 048
  8. INIPOMP [Concomitant]
     Route: 048
  9. MOVICOL [Concomitant]
     Route: 048
  10. EFFEXOR [Concomitant]
     Route: 048
  11. LYSANXIA [Concomitant]
     Route: 048

REACTIONS (1)
  - INTESTINAL OBSTRUCTION [None]
